FAERS Safety Report 10152032 (Version 1)
Quarter: 2014Q2

REPORT INFORMATION
  Report Type: Report from Study
  Country: CZ (occurrence: CZ)
  Receive Date: 20140505
  Receipt Date: 20140505
  Transmission Date: 20141212
  Serious: Yes (Death, Other)
  Sender: FDA-Public Use
  Company Number: CZ-ROCHE-1391475

PATIENT
  Sex: Female

DRUGS (2)
  1. AVASTIN [Suspect]
     Indication: BREAST CANCER
     Dosage: DAY 1, 15
     Route: 065
  2. PACLITAXEL [Suspect]
     Indication: BREAST CANCER
     Route: 065

REACTIONS (11)
  - Disease progression [Fatal]
  - Neutropenia [Unknown]
  - Gastrointestinal toxicity [Unknown]
  - Neuropathy peripheral [Unknown]
  - Gastrointestinal haemorrhage [Unknown]
  - Anaemia [Unknown]
  - Proteinuria [Unknown]
  - Fatigue [Unknown]
  - Melaena [Unknown]
  - Gastritis haemorrhagic [Unknown]
  - Vomiting [Unknown]
